FAERS Safety Report 8893967 (Version 4)
Quarter: 2013Q1

REPORT INFORMATION
  Report Type: Spontaneous
  Country: CA (occurrence: CA)
  Receive Date: 20121108
  Receipt Date: 20130214
  Transmission Date: 20140127
  Serious: Yes (Other)
  Sender: FDA-Public Use
  Company Number: CA-JNJFOC-20121101728

PATIENT
  Sex: Female
  Weight: 56.7 kg

DRUGS (4)
  1. NICORETTE [Suspect]
     Indication: SMOKING CESSATION THERAPY
     Dosage: 8-10 CHEWING GUMS
     Route: 048
  2. NICORETTE [Suspect]
     Indication: SMOKING CESSATION THERAPY
     Dosage: 8-10 CHEWING GUMS
     Route: 048
     Dates: start: 201004, end: 2011
  3. NICORETTE [Suspect]
     Indication: SMOKING CESSATION THERAPY
     Dosage: 8-10 CHEWING GUMS
     Route: 048
     Dates: start: 201004
  4. DAILY VITAMINS [Concomitant]
     Indication: ROUTINE HEALTH MAINTENANCE
     Route: 065

REACTIONS (6)
  - Nicotine dependence [Not Recovered/Not Resolved]
  - Overdose [Unknown]
  - Dental caries [Not Recovered/Not Resolved]
  - Tooth abscess [Not Recovered/Not Resolved]
  - Intentional drug misuse [Unknown]
  - Wrong technique in drug usage process [Unknown]
